FAERS Safety Report 16241853 (Version 4)
Quarter: 2020Q2

REPORT INFORMATION
  Report Type: Report from Study
  Country: US (occurrence: US)
  Receive Date: 20190426
  Receipt Date: 20200414
  Transmission Date: 20200713
  Serious: Yes (Hospitalization, Other)
  Sender: FDA-Public Use
  Company Number: US-ROCHE-2307366

PATIENT
  Age: 61 Year
  Sex: Male
  Weight: 104.42 kg

DRUGS (14)
  1. TIZANIDINE. [Concomitant]
     Active Substance: TIZANIDINE
     Indication: MUSCLE SPASMS
     Dosage: ONGOING : YES,STARTED ABOUT 5 YEARS AGO
     Route: 048
  2. DOCUSATE [Concomitant]
     Active Substance: DOCUSATE
     Route: 048
  3. LEVOFLOXACIN. [Concomitant]
     Active Substance: LEVOFLOXACIN
     Route: 048
  4. ATORVASTATIN [Concomitant]
     Active Substance: ATORVASTATIN
     Indication: BLOOD CHOLESTEROL INCREASED
     Dosage: ONGOING : YES,STARTED ABOUT 5 YEARS AGO
     Route: 048
  5. BACLOFEN. [Concomitant]
     Active Substance: BACLOFEN
     Indication: MUSCLE SPASMS
     Dosage: ONGOING : YES
     Route: 048
  6. LIDOCAINE. [Concomitant]
     Active Substance: LIDOCAINE
     Dosage: ONGOING: NO, STARTED DURING MARCH HOSPITALIZATION AND STOPPED
     Route: 065
     Dates: start: 202003
  7. LISINOPRIL. [Concomitant]
     Active Substance: LISINOPRIL
     Indication: HYPERTENSION
     Dosage: ONGOING : YES STARTED ABOUT 5 YEARS AGO
     Route: 048
  8. OCREVUS [Suspect]
     Active Substance: OCRELIZUMAB
     Indication: RELAPSING MULTIPLE SCLEROSIS
     Dosage: NEXT INFUSION ON 31/AUG/2018?ONGOING YES
     Route: 042
     Dates: start: 20180813
  9. QUETIAPINE. [Concomitant]
     Active Substance: QUETIAPINE
     Indication: INSOMNIA
     Dosage: ONGOING : YES
     Route: 048
  10. ZOLPIDEM [Concomitant]
     Active Substance: ZOLPIDEM TARTRATE
     Indication: INSOMNIA
     Dosage: ONGOING : YES,EXTENDED RELEASE STARTED ABOUT 4 YEARS AGO
     Route: 048
  11. AMPYRA [Concomitant]
     Active Substance: DALFAMPRIDINE
     Dosage: ONGOING : YES,STARTED ABOUT 18 MOTHS AGO
     Route: 048
  12. OXYCODONE [Concomitant]
     Active Substance: OXYCODONE
     Dosage: ONGOING: NO, STARTED DURING MAR HOSPITALIZATION AND WHEN HOME
     Route: 048
     Dates: start: 202003
  13. GABAPENTIN. [Concomitant]
     Active Substance: GABAPENTIN
     Indication: PAIN
     Dosage: ONGOING : YES STARTED ABOUT 4 TO 5 YRS
     Route: 048
  14. DALFAMPRIDINE. [Concomitant]
     Active Substance: DALFAMPRIDINE
     Route: 048

REACTIONS (18)
  - Localised infection [Recovering/Resolving]
  - Urinary tract infection [Recovered/Resolved]
  - Anuria [Recovered/Resolved]
  - Sepsis [Recovered/Resolved]
  - Gait disturbance [Not Recovered/Not Resolved]
  - Penile erosion [Not Recovered/Not Resolved]
  - Fall [Unknown]
  - Disorientation [Recovered/Resolved]
  - Off label use [Unknown]
  - Urethral injury [Recovered/Resolved]
  - Rhabdomyolysis [Recovered/Resolved]
  - Infection [Recovering/Resolving]
  - Acute kidney injury [Recovered/Resolved]
  - Mental status changes [Recovered/Resolved]
  - Urethral haemorrhage [Recovered/Resolved]
  - Foot fracture [Recovered/Resolved]
  - Troponin increased [Recovered/Resolved]
  - Drug ineffective [Unknown]

NARRATIVE: CASE EVENT DATE: 20190415
